FAERS Safety Report 6712980-X (Version None)
Quarter: 2010Q2

REPORT INFORMATION
  Report Type: 
  Country: None (occurrence: None)
  Receive Date: 20100506
  Receipt Date: 20100427
  Transmission Date: 20101027
  Serious: Yes (Hospitalization)
  Sender: FDA-Public Use
  Company Number: AU-NOVOPROD-307988

PATIENT
  Age: 76 Year
  Sex: Male

DRUGS (1)
  1. NOVOMIX 30 [Suspect]
     Indication: TYPE 1 DIABETES MELLITUS
     Dosage: 40 U, BID
     Route: 058

REACTIONS (2)
  - BLINDNESS UNILATERAL [None]
  - CORONARY ARTERY BYPASS [None]
